FAERS Safety Report 6349431-3 (Version None)
Quarter: 2009Q3

REPORT INFORMATION
  Report Type: 
  Country: None (occurrence: None)
  Receive Date: 20090911
  Receipt Date: 20090909
  Transmission Date: 20100115
  Serious: Yes (Hospitalization)
  Sender: FDA-Public Use
  Company Number: US-BRISTOL-MYERS SQUIBB COMPANY-14771646

PATIENT
  Age: 81 Year
  Sex: Female
  Weight: 57 kg

DRUGS (11)
  1. CARBOPLATIN [Suspect]
     Indication: OVARIAN CANCER
     Dosage: 1 DF- AUC OF 5 Q 3WKS IV; LAST DOSE WAS RECEIVED ON 17-APR-2008
     Route: 042
     Dates: start: 20071108, end: 20080501
  2. VITAMIN D [Concomitant]
     Indication: ROUTINE HEALTH MAINTENANCE
     Dosage: 1 DF- 1 TAB
     Route: 048
     Dates: start: 20000101
  3. XANAX [Concomitant]
     Indication: ANXIETY
     Dates: start: 20000101
  4. PRILOSEC [Concomitant]
     Indication: GASTROOESOPHAGEAL REFLUX DISEASE
     Dates: start: 20060901
  5. COMPAZINE [Concomitant]
     Indication: NAUSEA
     Dates: start: 20071030
  6. ARANESP [Concomitant]
     Indication: ANAEMIA
     Dates: start: 20071115
  7. RESTORIL [Concomitant]
     Indication: INSOMNIA
     Dates: start: 20071220
  8. MAGNESIUM OXIDE [Concomitant]
     Indication: HYPOMAGNESAEMIA
     Dates: start: 20080228
  9. BENTYL [Concomitant]
     Indication: ABDOMINAL PAIN
     Dates: start: 20080302
  10. MEGACE [Concomitant]
     Indication: DECREASED APPETITE
     Dates: start: 20080410
  11. CALCIUM [Concomitant]
     Indication: ROUTINE HEALTH MAINTENANCE
     Route: 048
     Dates: start: 20000101

REACTIONS (3)
  - DEPRESSION [None]
  - HAEMATURIA [None]
  - HYPOVOLAEMIA [None]
